FAERS Safety Report 24613397 (Version 1)
Quarter: 2024Q4

REPORT INFORMATION
  Report Type: Spontaneous
  Country: US (occurrence: None)
  Receive Date: 20241112
  Receipt Date: 20241112
  Transmission Date: 20250115
  Serious: Yes (Other)
  Sender: Public
  Company Number: None

PATIENT
  Age: 58 Year
  Sex: Female
  Weight: 63 kg

DRUGS (2)
  1. OFLOXACIN [Suspect]
     Active Substance: OFLOXACIN
     Indication: Hordeolum
     Dosage: 1 DROOP 4 TIMES A DAY OPHTHALMIC
     Route: 047
     Dates: start: 20241019, end: 20241023
  2. MAGNESIUM GLYCINATE [Concomitant]
     Active Substance: MAGNESIUM GLYCINATE

REACTIONS (3)
  - Diplopia [None]
  - Vision blurred [None]
  - Astigmatism [None]

NARRATIVE: CASE EVENT DATE: 20241023
